FAERS Safety Report 6540864-9 (Version None)
Quarter: 2010Q1

REPORT INFORMATION
  Report Type: 
  Country: None (occurrence: None)
  Receive Date: 20100118
  Receipt Date: 20100107
  Transmission Date: 20100710
  Serious: Yes (Other)
  Sender: FDA-Public Use
  Company Number: AU-ELI_LILLY_AND_COMPANY-AU200911007343

PATIENT
  Sex: Male

DRUGS (1)
  1. EFFIENT [Suspect]
     Dosage: 10 MG, UNKNOWN (MAINTENANCE DOSE)

REACTIONS (3)
  - CEREBROVASCULAR ACCIDENT [None]
  - OFF LABEL USE [None]
  - OVERDOSE [None]
